FAERS Safety Report 6042425-7 (Version None)
Quarter: 2009Q1

REPORT INFORMATION
  Report Type: 
  Country: None (occurrence: None)
  Receive Date: 20090116
  Receipt Date: 20090108
  Transmission Date: 20090719
  Serious: Yes (Other)
  Sender: FDA-Public Use
  Company Number: ES-PFIZER INC-2009152666

PATIENT

DRUGS (1)
  1. LYRICA [Suspect]
     Dosage: 75 MG, UNK

REACTIONS (10)
  - AGITATION [None]
  - BRONCHOSPASM [None]
  - CONFUSIONAL STATE [None]
  - DIZZINESS [None]
  - DRY MOUTH [None]
  - DYSPHAGIA [None]
  - DYSPNOEA [None]
  - HYPERAESTHESIA [None]
  - HYPOAESTHESIA [None]
  - TONGUE OEDEMA [None]
